FAERS Safety Report 19522197 (Version 1)
Quarter: 2021Q3

REPORT INFORMATION
  Report Type: Spontaneous
  Country: US (occurrence: US)
  Receive Date: 20210712
  Receipt Date: 20210712
  Transmission Date: 20211014
  Serious: No
  Sender: FDA-Public Use
  Company Number: US-MYOVANT SCIENCES GMBH-2021MYSCI0400155

PATIENT
  Sex: Male

DRUGS (1)
  1. ORGOVYX [Suspect]
     Active Substance: RELUGOLIX
     Indication: PRODUCT USED FOR UNKNOWN INDICATION
     Dosage: UNK
     Route: 065

REACTIONS (10)
  - Flatulence [Unknown]
  - Respiration abnormal [Unknown]
  - Pain in extremity [Unknown]
  - Abdominal pain [Unknown]
  - Chest pain [Unknown]
  - Anxiety [Unknown]
  - Abnormal faeces [Unknown]
  - Abdominal discomfort [Unknown]
  - Hot flush [Unknown]
  - Bradyphrenia [Unknown]
